FAERS Safety Report 4684267-0 (Version None)
Quarter: 2005Q2

REPORT INFORMATION
  Report Type: 
  Country: None (occurrence: None)
  Receive Date: 20050531
  Receipt Date: 20041215
  Transmission Date: 20051028
  Serious: Yes (Disabling, Other)
  Sender: FDA-Public Use
  Company Number: USA040979227

PATIENT
  Age: 33 Year
  Sex: Male
  Weight: 95 kg

DRUGS (2)
  1. ZYPREXA [Suspect]
     Indication: SCHIZOAFFECTIVE DISORDER
     Dosage: 30 MG DAY
     Dates: start: 20010101
  2. ACETYLSALICYLIC ACID SRT [Concomitant]

REACTIONS (2)
  - OCULOGYRATION [None]
  - PRESCRIBED OVERDOSE [None]
